FAERS Safety Report 21621725 (Version 1)
Quarter: 2022Q4

REPORT INFORMATION
  Report Type: Report from Study
  Country: IT (occurrence: IT)
  Receive Date: 20221121
  Receipt Date: 20221121
  Transmission Date: 20230113
  Serious: Yes (Hospitalization)
  Sender: FDA-Public Use
  Company Number: None

PATIENT
  Age: 59 Year
  Sex: Female

DRUGS (2)
  1. OGIVRI [Suspect]
     Active Substance: TRASTUZUMAB-DKST
     Indication: Breast cancer stage III
     Dosage: 320MG, 6 MG/KG (CYCLES SUCCESSIVE TO THE FIRST)
     Route: 042
     Dates: start: 20220721, end: 20220721
  2. TACHIPIRINA [Suspect]
     Active Substance: ACETAMINOPHEN
     Indication: Analgesic therapy
     Dosage: 500 MILLIGRAM, Q6H,  1 TABLET 500 MG EVERY 6 HOURS
     Route: 048
     Dates: start: 20220721, end: 20220722

REACTIONS (3)
  - Urticaria [Recovering/Resolving]
  - Pyrexia [Recovering/Resolving]
  - Cancer fatigue [Recovering/Resolving]

NARRATIVE: CASE EVENT DATE: 20220721
